FAERS Safety Report 10097135 (Version 2)
Quarter: 2016Q1

REPORT INFORMATION
  Report Type: Spontaneous
  Country: DK (occurrence: CA)
  Receive Date: 20140422
  Receipt Date: 20160226
  Transmission Date: 20160525
  Serious: Yes (Hospitalization)
  Sender: FDA-Public Use
  Company Number: CA-FRI-1000066738

PATIENT
  Age: 29 Year
  Sex: Male
  Weight: 63.5 kg

DRUGS (4)
  1. ETHANOL [Interacting]
     Active Substance: ALCOHOL
     Indication: PRODUCT USED FOR UNKNOWN INDICATION
  2. ESCITALOPRAM [Suspect]
     Active Substance: ESCITALOPRAM OXALATE
     Indication: DEPRESSION
     Dosage: 20 MG IN THE MORNING
     Route: 048
  3. ESCITALOPRAM [Interacting]
     Active Substance: ESCITALOPRAM OXALATE
     Dosage: 10 MG
     Route: 048
  4. PMS-METHYLPHENIDATE [Interacting]
     Active Substance: METHYLPHENIDATE HYDROCHLORIDE
     Indication: ATTENTION DEFICIT/HYPERACTIVITY DISORDER
     Dosage: 20 MG
     Route: 048

REACTIONS (8)
  - Nausea [Recovered/Resolved]
  - Drug interaction [Recovered/Resolved]
  - Electrocardiogram QT interval [Recovered/Resolved]
  - Dizziness [Recovered/Resolved]
  - Loss of consciousness [Recovered/Resolved]
  - Vomiting [Recovered/Resolved]
  - Presyncope [Recovered/Resolved]
  - Abdominal discomfort [Recovered/Resolved]

NARRATIVE: CASE EVENT DATE: 20121201
